FAERS Safety Report 9187262 (Version 5)
Quarter: 2014Q2

REPORT INFORMATION
  Report Type: Spontaneous
  Country: US (occurrence: US)
  Receive Date: 20130325
  Receipt Date: 20140411
  Transmission Date: 20141212
  Serious: Yes (Hospitalization, Other)
  Sender: FDA-Public Use
  Company Number: US-009507513-1303USA010351

PATIENT
  Sex: Male
  Weight: 98.41 kg

DRUGS (1)
  1. PROPECIA [Suspect]
     Indication: ANDROGENETIC ALOPECIA
     Dosage: 1 MG, QD
     Route: 048
     Dates: start: 1998, end: 2005

REACTIONS (15)
  - Prostate cancer [Not Recovered/Not Resolved]
  - Prostatectomy [Unknown]
  - Cognitive disorder [Not Recovered/Not Resolved]
  - Anxiety [Not Recovered/Not Resolved]
  - Urinary incontinence [Not Recovered/Not Resolved]
  - Bipolar I disorder [Unknown]
  - Thinking abnormal [Unknown]
  - Lymphadenectomy [Unknown]
  - Tic [Unknown]
  - Abdominal pain upper [Unknown]
  - Sleep disorder [Not Recovered/Not Resolved]
  - Sexual dysfunction [Not Recovered/Not Resolved]
  - Depression [Not Recovered/Not Resolved]
  - Erectile dysfunction [Not Recovered/Not Resolved]
  - Gynaecomastia [Not Recovered/Not Resolved]
